FAERS Safety Report 8800852 (Version 2)
Quarter: 2015Q1

REPORT INFORMATION
  Report Type: Report from Study
  Country: US (occurrence: US)
  Receive Date: 20120920
  Receipt Date: 20150226
  Transmission Date: 20150721
  Serious: Yes (Death)
  Sender: FDA-Public Use
  Company Number: US-ROCHE-1098269

PATIENT
  Sex: Male
  Weight: 83 kg

DRUGS (7)
  1. AVASTIN [Suspect]
     Active Substance: BEVACIZUMAB
     Indication: COLON CANCER
     Dosage: 10 DOSE 5MG/KG
     Route: 042
     Dates: start: 20040414
  2. AVASTIN [Suspect]
     Active Substance: BEVACIZUMAB
     Indication: METASTASES TO LIVER
  3. 5-FU [Concomitant]
     Active Substance: FLUOROURACIL
  4. AVASTIN [Suspect]
     Active Substance: BEVACIZUMAB
     Indication: COLON CANCER
  5. XELODA [Suspect]
     Active Substance: CAPECITABINE
     Indication: PRODUCT USED FOR UNKNOWN INDICATION
     Route: 048
  6. IRINOTECAN [Concomitant]
     Active Substance: IRINOTECAN
  7. LEUCOVORIN [Concomitant]
     Active Substance: LEUCOVORIN

REACTIONS (1)
  - Death [Fatal]
